FAERS Safety Report 6622219-1 (Version None)
Quarter: 2010Q1

REPORT INFORMATION
  Report Type: 
  Country: None (occurrence: None)
  Receive Date: 20100310
  Receipt Date: 20100302
  Transmission Date: 20100710
  Serious: Yes (Hospitalization, Other)
  Sender: FDA-Public Use
  Company Number: US-BIOGENIDEC-2010BI002235

PATIENT
  Age: 60 Year
  Sex: Male
  Weight: 113 kg

DRUGS (1)
  1. AVONEX [Suspect]
     Indication: MULTIPLE SCLEROSIS
     Route: 030
     Dates: start: 20080208, end: 20100101

REACTIONS (6)
  - CARDIAC FAILURE CONGESTIVE [None]
  - HYPERTENSION [None]
  - HYPOTENSION [None]
  - METABOLIC FUNCTION TEST ABNORMAL [None]
  - PLEURAL EFFUSION [None]
  - VENTRICULAR HYPOKINESIA [None]
